FAERS Safety Report 4840740-3 (Version None)
Quarter: 2005Q4

REPORT INFORMATION
  Report Type: 
  Country: None (occurrence: None)
  Receive Date: 20051130
  Receipt Date: 20051011
  Transmission Date: 20060501
  Serious: Yes (Hospitalization, Disabling)
  Sender: FDA-Public Use
  Company Number: 2005PK01897

PATIENT
  Age: 20803 Day
  Sex: Female
  Weight: 77 kg

DRUGS (12)
  1. NAROPIN [Suspect]
     Indication: POSTOPERATIVE ANALGESIA
     Dosage: 0.75%
     Route: 008
     Dates: start: 20051007, end: 20051007
  2. NAROPIN [Suspect]
     Indication: ANAESTHESIA
     Dosage: 0.75%
     Route: 008
     Dates: start: 20051007, end: 20051007
  3. NAROPIN [Suspect]
     Indication: NERVE BLOCK
     Dosage: 0.75%
     Route: 008
     Dates: start: 20051007, end: 20051007
  4. NAROPIN [Suspect]
     Dosage: 0.2%
     Route: 008
     Dates: start: 20051007, end: 20051007
  5. NAROPIN [Suspect]
     Dosage: 0.2%
     Route: 008
     Dates: start: 20051007, end: 20051007
  6. NAROPIN [Suspect]
     Dosage: 0.2%
     Route: 008
     Dates: start: 20051007, end: 20051007
  7. NAROPIN [Suspect]
     Dosage: 0.2%
     Route: 008
     Dates: start: 20051008, end: 20051009
  8. NAROPIN [Suspect]
     Dosage: 0.2%
     Route: 008
     Dates: start: 20051008, end: 20051009
  9. NAROPIN [Suspect]
     Dosage: 0.2%
     Route: 008
     Dates: start: 20051008, end: 20051009
  10. NOVAMINSULFON [Concomitant]
     Indication: POSTOPERATIVE ANALGESIA
     Route: 048
     Dates: start: 20051009
  11. CLEXANE [Concomitant]
     Indication: THROMBOSIS PROPHYLAXIS
     Route: 058
     Dates: start: 20051007, end: 20051008
  12. CLEXANE [Concomitant]
     Route: 058
     Dates: start: 20051009

REACTIONS (5)
  - ANORECTAL DISORDER [None]
  - NEUROGENIC BLADDER [None]
  - NEUROTOXICITY [None]
  - PARALYSIS [None]
  - PARAPLEGIA [None]
